FAERS Safety Report 4629434-7 (Version None)
Quarter: 2005Q2

REPORT INFORMATION
  Report Type: 
  Country: None (occurrence: None)
  Receive Date: 20050405
  Receipt Date: 20050321
  Transmission Date: 20051028
  Serious: Yes (Other)
  Sender: FDA-Public Use
  Company Number: 2005051249

PATIENT
  Age: 12 Day
  Sex: Male

DRUGS (2)
  1. CEFOPERAZONE/SULBACTAM (SULBACTAM, CEFOPERAZONE) [Suspect]
     Indication: SEPSIS
     Dosage: 200 MG/KG (250 MG, 12 HOURS), INTRAVENOUS
     Route: 042
  2. AMIKACIN [Concomitant]

REACTIONS (1)
  - HAEMATURIA [None]
